FAERS Safety Report 13943035 (Version 1)
Quarter: 2017Q3

REPORT INFORMATION
  Report Type: Report from Study
  Country: ES (occurrence: ES)
  Receive Date: 20170906
  Receipt Date: 20170906
  Transmission Date: 20171128
  Serious: Yes (Other)
  Sender: FDA-Public Use
  Company Number: ES-EISAI MEDICAL RESEARCH-EC-2017-030761

PATIENT
  Age: 53 Year
  Sex: Female
  Weight: 56 kg

DRUGS (5)
  1. ERIBULIN [Suspect]
     Active Substance: ERIBULIN
     Indication: BREAST CANCER
     Route: 041
     Dates: start: 20170308, end: 20170719
  2. PQR309 [Suspect]
     Active Substance: INVESTIGATIONAL PRODUCT
     Dosage: 2 DAYS ON, 5 DAYS OFF
     Route: 048
     Dates: start: 20170329, end: 20170406
  3. IBUPROFEN. [Concomitant]
     Active Substance: IBUPROFEN
  4. PQR309 [Suspect]
     Active Substance: INVESTIGATIONAL PRODUCT
     Dosage: 2 DAYS ON, 5 DAYS OFF
     Route: 048
     Dates: start: 20170419, end: 20170727
  5. PQR309 [Suspect]
     Active Substance: INVESTIGATIONAL PRODUCT
     Indication: BREAST CANCER
     Dosage: 2 DAYS ON, 5 DAYS OFF
     Route: 048
     Dates: start: 20170315, end: 20170316

REACTIONS (1)
  - Neutrophil count decreased [Recovered/Resolved]

NARRATIVE: CASE EVENT DATE: 20170321
